FAERS Safety Report 9424320 (Version 1)
Quarter: 2013Q3

REPORT INFORMATION
  Report Type: Spontaneous
  Country: US (occurrence: None)
  Receive Date: 20130726
  Receipt Date: 20130726
  Transmission Date: 20140515
  Serious: No
  Sender: FDA-Public Use
  Company Number: None

PATIENT
  Age: 70 Year
  Sex: Female
  Weight: 40.5 kg

DRUGS (2)
  1. CARBOPLATIN [Suspect]
     Dates: start: 20130225, end: 20130614
  2. PACLITAXEL [Suspect]
     Dates: end: 20130614

REACTIONS (7)
  - Dehydration [None]
  - Urinary tract infection [None]
  - Fall [None]
  - Head injury [None]
  - Asthenia [None]
  - Diarrhoea [None]
  - Febrile neutropenia [None]
